FAERS Safety Report 7929155-9 (Version None)
Quarter: 2011Q4

REPORT INFORMATION
  Report Type: 
  Country: None (occurrence: None)
  Receive Date: 20111120
  Receipt Date: 20111108
  Transmission Date: 20120403
  Serious: Yes (Hospitalization, Other)
  Sender: FDA-Public Use
  Company Number: CA-ELI_LILLY_AND_COMPANY-CA201109007897

PATIENT
  Age: 79 Year
  Sex: Female

DRUGS (15)
  1. RAMIPRIL [Concomitant]
  2. VITAMIN B-12 [Concomitant]
  3. ZYLOPRIM [Concomitant]
  4. FUROSEMIDE [Concomitant]
  5. SPIRIVA [Concomitant]
  6. FORTEO [Suspect]
     Indication: OSTEOPOROSIS
     Dosage: 20 UG, QD
     Route: 058
     Dates: start: 20100705
  7. ISOSORBIDE MONONITRATE [Concomitant]
  8. VITAMIN D [Concomitant]
  9. ATORVASTATIN [Concomitant]
  10. PLAVIX [Concomitant]
  11. VENTOLIN [Concomitant]
  12. FORMOTEROL FUMARATE [Concomitant]
  13. BISOPROLOL FUMARATE [Concomitant]
  14. PANTOPRAZOLE [Concomitant]
  15. ASAPHEN [Concomitant]

REACTIONS (2)
  - PAIN [None]
  - THROMBOPHLEBITIS [None]
